FAERS Safety Report 23793878 (Version 2)
Quarter: 2024Q2

REPORT INFORMATION
  Report Type: Report from Study
  Country: GB (occurrence: GB)
  Receive Date: 20240429
  Receipt Date: 20240617
  Transmission Date: 20240716
  Serious: Yes (Other)
  Sender: FDA-Public Use
  Company Number: GB-SANDOZ-SDZ2024GB038257

PATIENT
  Sex: Female

DRUGS (1)
  1. HYRIMOZ [Suspect]
     Active Substance: ADALIMUMAB-ADAZ
     Indication: Colitis ulcerative
     Dosage: 40 MG/0.4ML, Q2W
     Route: 058
     Dates: start: 20240319

REACTIONS (5)
  - Colitis ulcerative [Unknown]
  - Dizziness [Unknown]
  - Skin mass [Not Recovered/Not Resolved]
  - Fatigue [Unknown]
  - Influenza [Recovering/Resolving]
